FAERS Safety Report 13606047 (Version 1)
Quarter: 2017Q2

REPORT INFORMATION
  Report Type: Spontaneous
  Country: US (occurrence: US)
  Receive Date: 20170602
  Receipt Date: 20170602
  Transmission Date: 20170830
  Serious: Yes (Hospitalization)
  Sender: FDA-Public Use
  Company Number: None

PATIENT
  Age: 70 Year
  Sex: Male
  Weight: 163.2 kg

DRUGS (1)
  1. DRONEDARONE [Suspect]
     Active Substance: DRONEDARONE
     Indication: ATRIAL FIBRILLATION
     Route: 048
     Dates: start: 20170306, end: 20170322

REACTIONS (11)
  - Acute kidney injury [None]
  - Sinus arrest [None]
  - Flank pain [None]
  - Weight increased [None]
  - Asthenia [None]
  - Urine analysis abnormal [None]
  - Confusional state [None]
  - Sinus bradycardia [None]
  - Fluid retention [None]
  - Urinary tract infection [None]
  - Feeling abnormal [None]

NARRATIVE: CASE EVENT DATE: 20170322
